FAERS Safety Report 15254626 (Version 1)
Quarter: 2018Q3

REPORT INFORMATION
  Report Type: Spontaneous
  Country: CN (occurrence: CN)
  Receive Date: 20180808
  Receipt Date: 20180808
  Transmission Date: 20181010
  Serious: Yes (Other)
  Sender: FDA-Public Use
  Company Number: CN-PFIZER INC-2018312069

PATIENT
  Age: 36 Year
  Sex: Female
  Weight: 57.5 kg

DRUGS (5)
  1. OXYTOCIN. [Suspect]
     Active Substance: OXYTOCIN
     Indication: UTERINE ATONY
     Dosage: 2 ML, 1X/DAY
     Route: 041
     Dates: start: 20180617, end: 20180617
  2. LI FU XIN [Concomitant]
     Indication: INFECTION
     Dosage: 1.5 G, 1X/DAY
     Route: 041
     Dates: start: 20180617, end: 20180617
  3. HEMABATE [Suspect]
     Active Substance: CARBOPROST TROMETHAMINE
     Indication: UTERINE ATONY
     Dosage: 250 UG, 1X/DAY
     Route: 030
     Dates: start: 20180617, end: 20180617
  4. SODIUM CHLORIDE. [Concomitant]
     Active Substance: SODIUM CHLORIDE
     Indication: VEHICLE SOLUTION USE
     Dosage: 500 ML, 1X/DAY
     Route: 041
     Dates: start: 20180617, end: 20180617
  5. SODIUM CHLORIDE. [Concomitant]
     Active Substance: SODIUM CHLORIDE
     Dosage: 100 ML, 1X/DAY
     Route: 041
     Dates: start: 20180617, end: 20180617

REACTIONS (2)
  - Pruritus [Recovered/Resolved]
  - Flushing [Recovered/Resolved]

NARRATIVE: CASE EVENT DATE: 20180617
